FAERS Safety Report 6938335-0 (Version None)
Quarter: 2010Q3

REPORT INFORMATION
  Report Type: 
  Country: None (occurrence: None)
  Receive Date: 20100824
  Receipt Date: 20100816
  Transmission Date: 20110219
  Serious: Yes (Hospitalization, Other)
  Sender: FDA-Public Use
  Company Number: US-PFIZER INC-2010103600

PATIENT
  Sex: Female
  Weight: 49 kg

DRUGS (7)
  1. XALATAN [Suspect]
     Indication: GLAUCOMA
     Dosage: UNK
     Route: 047
  2. DILTIAZEM [Concomitant]
     Dosage: 180 MG, UNK
  3. METOPROLOL [Concomitant]
     Indication: HYPERTENSION
     Dosage: 50 MG, 2X/DAY
  4. SYNTHROID [Concomitant]
     Indication: THYROID DISORDER
     Dosage: 0.075 MG, 1X/DAY
  5. COZAAR [Concomitant]
     Dosage: 50 MG, 1X/DAY
  6. SIMVASTATIN [Concomitant]
     Dosage: 20 MG, 1X/DAY
  7. MULTI-VITAMINS [Concomitant]
     Dosage: UNK

REACTIONS (9)
  - BODY HEIGHT DECREASED [None]
  - CARDIAC DISORDER [None]
  - CARDIAC FIBRILLATION [None]
  - CARDIAC PACEMAKER INSERTION [None]
  - CATARACT [None]
  - MYOCARDIAL INFARCTION [None]
  - PALPITATIONS [None]
  - STENT PLACEMENT [None]
  - VISION BLURRED [None]
